FAERS Safety Report 9513471 (Version 1)
Quarter: 2013Q3

REPORT INFORMATION
  Report Type: Spontaneous
  Country: US (occurrence: US)
  Receive Date: 20130910
  Receipt Date: 20130910
  Transmission Date: 20140515
  Serious: No
  Sender: FDA-Public Use
  Company Number: US-TARO-2013P1003869

PATIENT
  Age: 67 Year
  Sex: Male
  Weight: 114.31 kg

DRUGS (6)
  1. WARFARIN SODIUM TABLETS USP 5MG [Suspect]
     Route: 048
     Dates: start: 2012
  2. ASPIRIN [Concomitant]
     Dates: start: 2012
  3. CALCIUM [Concomitant]
     Dates: start: 2012
  4. NATURAL PROSTATE MEDICINE [Concomitant]
     Dates: start: 201302
  5. SAW PALMETTO [Concomitant]
  6. AVODART [Concomitant]

REACTIONS (3)
  - Dermatitis [Recovering/Resolving]
  - Food allergy [Not Recovered/Not Resolved]
  - Allergy to chemicals [Not Recovered/Not Resolved]
